FAERS Safety Report 14007122 (Version 1)
Quarter: 2017Q3

REPORT INFORMATION
  Report Type: Spontaneous
  Country: US (occurrence: US)
  Receive Date: 20170923
  Receipt Date: 20170923
  Transmission Date: 20171128
  Serious: Yes (Life-Threatening, Hospitalization, Disabling, Other)
  Sender: FDA-Public Use
  Company Number: None

PATIENT
  Sex: Male
  Weight: 83.7 kg

DRUGS (4)
  1. MINERAL OIL. [Concomitant]
     Active Substance: MINERAL OIL
  2. IBUPROFEN. [Suspect]
     Active Substance: IBUPROFEN
     Indication: TOOTH EXTRACTION
     Dosage: ?          QUANTITY:3 CAPSULE(S);?
     Route: 048
     Dates: start: 20170818, end: 20170822
  3. NORCO [Concomitant]
     Active Substance: ACETAMINOPHEN\HYDROCODONE BITARTRATE
  4. MIRALAX [Concomitant]
     Active Substance: POLYETHYLENE GLYCOL 3350

REACTIONS (9)
  - Pyrexia [None]
  - Back pain [None]
  - Dyspnoea [None]
  - Gastritis [None]
  - Acute kidney injury [None]
  - Abdominal pain upper [None]
  - Gastric ulcer [None]
  - Pain [None]
  - Renal tubular necrosis [None]

NARRATIVE: CASE EVENT DATE: 20170824
